FAERS Safety Report 12934794 (Version 1)
Quarter: 2016Q4

REPORT INFORMATION
  Report Type: Spontaneous
  Country: AU (occurrence: AU)
  Receive Date: 20161112
  Receipt Date: 20161112
  Transmission Date: 20170207
  Serious: Yes (Hospitalization)
  Sender: FDA-Public Use
  Company Number: AU-BAXTER-2016BAX056535

PATIENT
  Age: 72 Year
  Sex: Female

DRUGS (5)
  1. FLUOROURACIL. [Suspect]
     Active Substance: FLUOROURACIL
     Indication: PRODUCT USED FOR UNKNOWN INDICATION
     Dosage: INFUSION OVER 46 HOURS
     Route: 042
     Dates: start: 20161004
  2. PALONOSETRON [Suspect]
     Active Substance: PALONOSETRON
     Indication: ANTIEMETIC SUPPORTIVE CARE
     Dosage: Q2S2
     Route: 042
     Dates: start: 20161004
  3. BAXTER 5% GLUCOSE 12.5G_250ML INJECTION BP BAG AHB0062 [Suspect]
     Active Substance: DEXTROSE
     Indication: MEDICATION DILUTION
     Dosage: PORT-A-CATH, Q2S2
     Route: 042
     Dates: start: 20161004
  4. [PSS GPN] OXALIPLATIN DBL [Suspect]
     Active Substance: OXALIPLATIN
     Indication: COLORECTAL CANCER
     Dosage: PORT-A-CATH, Q2S2
     Route: 042
     Dates: start: 20161004
  5. DEXAMETHASONE. [Suspect]
     Active Substance: DEXAMETHASONE
     Indication: ANTIEMETIC SUPPORTIVE CARE
     Dosage: Q2S2
     Route: 042
     Dates: start: 20161004

REACTIONS (5)
  - Glossitis [Recovering/Resolving]
  - Joint lock [Unknown]
  - Joint stiffness [Recovering/Resolving]
  - Muscular weakness [Unknown]
  - Ataxia [Recovering/Resolving]

NARRATIVE: CASE EVENT DATE: 20161031
